FAERS Safety Report 17392517 (Version 2)
Quarter: 2020Q1

REPORT INFORMATION
  Report Type: Spontaneous
  Country: US (occurrence: US)
  Receive Date: 20200207
  Receipt Date: 20200303
  Transmission Date: 20200409
  Serious: Yes (Other)
  Sender: FDA-Public Use
  Company Number: US-JNJFOC-20200205109

PATIENT
  Age: 81 Year
  Sex: Female
  Weight: 63.56 kg

DRUGS (2)
  1. XARELTO [Suspect]
     Active Substance: RIVAROXABAN
     Indication: ATRIAL FIBRILLATION
     Dosage: GTIN: 00350458579307?S/N: 100012085613
     Route: 048
     Dates: start: 20191216, end: 202001
  2. XARELTO [Suspect]
     Active Substance: RIVAROXABAN
     Indication: CEREBROVASCULAR ACCIDENT PROPHYLAXIS
     Dosage: GTIN: 00350458579307?S/N: 100013447176
     Route: 048

REACTIONS (3)
  - Treatment noncompliance [Unknown]
  - Epistaxis [Unknown]
  - Rectal haemorrhage [Unknown]

NARRATIVE: CASE EVENT DATE: 202001
